FAERS Safety Report 7446337-3 (Version None)
Quarter: 2011Q2

REPORT INFORMATION
  Report Type: 
  Country: None (occurrence: None)
  Receive Date: 20110429
  Receipt Date: 20100831
  Transmission Date: 20111010
  Serious: No
  Sender: FDA-Public Use
  Company Number: US-ASTRAZENECA-2010SE41073

PATIENT
  Sex: Male

DRUGS (1)
  1. NEXIUM [Suspect]
     Route: 048
     Dates: start: 19990101

REACTIONS (6)
  - DIARRHOEA [None]
  - DRUG DOSE OMISSION [None]
  - CROHN'S DISEASE [None]
  - MALAISE [None]
  - DISABILITY [None]
  - IMPAIRED WORK ABILITY [None]
